FAERS Safety Report 6749753-8 (Version None)
Quarter: 2010Q2

REPORT INFORMATION
  Report Type: 
  Country: None (occurrence: None)
  Receive Date: 20100527
  Receipt Date: 20100512
  Transmission Date: 20101027
  Serious: Yes (Hospitalization)
  Sender: FDA-Public Use
  Company Number: 2010001927

PATIENT
  Sex: Male

DRUGS (2)
  1. TARCEVA [Suspect]
     Indication: PANCREATIC CARCINOMA
     Dosage: ORAL
     Dates: start: 20091215, end: 20100407
  2. GEMCITABINE [Suspect]
     Indication: PANCREATIC CARCINOMA
     Dates: start: 20091215, end: 20100407

REACTIONS (12)
  - ABDOMINAL PAIN UPPER [None]
  - ASTHENIA [None]
  - BENIGN PROSTATIC HYPERPLASIA [None]
  - DECREASED APPETITE [None]
  - DISEASE PROGRESSION [None]
  - FATIGUE [None]
  - GENERAL PHYSICAL HEALTH DETERIORATION [None]
  - MALAISE [None]
  - NAUSEA [None]
  - PANCREATIC CARCINOMA [None]
  - THROMBOCYTOPENIA [None]
  - WHEEZING [None]
